FAERS Safety Report 5428562-6 (Version None)
Quarter: 2007Q3

REPORT INFORMATION
  Report Type: 
  Country: None (occurrence: None)
  Receive Date: 20070824
  Receipt Date: 20070809
  Transmission Date: 20080115
  Serious: Yes (Hospitalization, Other)
  Sender: FDA-Public Use
  Company Number: 2007CL001106

PATIENT
  Age: 51 Year
  Sex: Male
  Weight: 84.369 kg

DRUGS (11)
  1. SYMLIN [Suspect]
     Indication: TYPE 1 DIABETES MELLITUS
     Dosage: 30 MCG;TID;SC : 60 MCG;QID;SC : 15 MCG;TID;SC
     Route: 058
     Dates: start: 20070101, end: 20070101
  2. SYMLIN [Suspect]
     Indication: TYPE 1 DIABETES MELLITUS
     Dosage: 30 MCG;TID;SC : 60 MCG;QID;SC : 15 MCG;TID;SC
     Route: 058
     Dates: start: 20070222, end: 20070516
  3. SYMLIN [Suspect]
     Indication: TYPE 1 DIABETES MELLITUS
     Dosage: 30 MCG;TID;SC : 60 MCG;QID;SC : 15 MCG;TID;SC
     Route: 058
     Dates: start: 20070101
  4. LANTUS [Concomitant]
  5. HUMALOG [Concomitant]
  6. METHOTREXATE [Concomitant]
  7. WELCHOL [Concomitant]
  8. ALTACE [Concomitant]
  9. LEVOXYL [Concomitant]
  10. LOPRESSOR [Concomitant]
  11. URSODIOL [Concomitant]

REACTIONS (8)
  - DIABETIC KETOACIDOSIS [None]
  - DRUG DOSE OMISSION [None]
  - HYPOGLYCAEMIA [None]
  - LOBAR PNEUMONIA [None]
  - PNEUMONIA [None]
  - RENAL FAILURE ACUTE [None]
  - TREATMENT NONCOMPLIANCE [None]
  - VOMITING [None]
